FAERS Safety Report 9219173 (Version 1)
Quarter: 2013Q2

REPORT INFORMATION
  Report Type: Spontaneous
  Country: US (occurrence: None)
  Receive Date: 20130405
  Receipt Date: 20130405
  Transmission Date: 20140414
  Serious: Yes (Hospitalization)
  Sender: FDA-Public Use
  Company Number: None

PATIENT
  Age: 74 Year
  Sex: Female
  Weight: 50.9 kg

DRUGS (2)
  1. CISPLATIN [Suspect]
     Dates: end: 20110803
  2. ETOPOSIDE (VP-16) [Suspect]
     Dates: end: 20110805

REACTIONS (4)
  - Platelet count decreased [None]
  - Pulmonary embolism [None]
  - Palpitations [None]
  - Haemoglobin decreased [None]
